FAERS Safety Report 18690303 (Version 1)
Quarter: 2021Q1

REPORT INFORMATION
  Report Type: Spontaneous
  Country: AR (occurrence: AR)
  Receive Date: 20210101
  Receipt Date: 20210101
  Transmission Date: 20210419
  Serious: Yes (Other)
  Sender: FDA-Public Use
  Company Number: AR-LUPIN PHARMACEUTICALS INC.-2020-08481

PATIENT
  Age: 25 Year
  Sex: Female

DRUGS (4)
  1. OXCARBAZEPINE. [Concomitant]
     Active Substance: OXCARBAZEPINE
     Dosage: 600 MILLIGRAM, QD (OXCARBAZEPINE WAS ADDED AT THE DOSE OF 300 MG PER DAY FOR ONE MONTH, INCREASING D
     Route: 065
  2. LEVETIRACETAM. [Suspect]
     Active Substance: LEVETIRACETAM
     Dosage: 500 MILLIGRAM, QD
     Route: 065
  3. LEVETIRACETAM. [Suspect]
     Active Substance: LEVETIRACETAM
     Indication: PETIT MAL EPILEPSY
     Dosage: 1 GRAM, QD
     Route: 065
  4. OXCARBAZEPINE. [Concomitant]
     Active Substance: OXCARBAZEPINE
     Indication: PETIT MAL EPILEPSY
     Dosage: 300 MILLIGRAM, QD (OXCARBAZEPINE WAS ADDED AT THE DOSE OF 300 MG PER DAY FOR ONE MONTH, INCREASING D
     Route: 065

REACTIONS (1)
  - Drug ineffective [Unknown]
